FAERS Safety Report 5384912-0 (Version None)
Quarter: 2007Q3

REPORT INFORMATION
  Report Type: 
  Country: None (occurrence: None)
  Receive Date: 20070709
  Receipt Date: 20070625
  Transmission Date: 20080115
  Serious: Yes (Hospitalization)
  Sender: FDA-Public Use
  Company Number: 2007BI010365

PATIENT
  Age: 37 Year
  Sex: Male

DRUGS (5)
  1. NATALIZUMAB [Suspect]
     Indication: MULTIPLE SCLEROSIS
     Dosage: 300 MG QW IV
     Route: 042
     Dates: start: 20070326
  2. CALAN [Concomitant]
  3. PAMELOR [Concomitant]
  4. NEURONTIN [Concomitant]
  5. VALTREX [Concomitant]

REACTIONS (5)
  - APHASIA [None]
  - CONVULSION [None]
  - HYPOAESTHESIA [None]
  - MOVEMENT DISORDER [None]
  - PARAESTHESIA [None]
